FAERS Safety Report 6633972-5 (Version None)
Quarter: 2010Q1

REPORT INFORMATION
  Report Type: 
  Country: None (occurrence: None)
  Receive Date: 20100315
  Receipt Date: 20100308
  Transmission Date: 20100710
  Serious: Yes (Hospitalization)
  Sender: FDA-Public Use
  Company Number: FR-ASTRAZENECA-2008CG00559

PATIENT
  Age: 32 Year
  Sex: Male

DRUGS (12)
  1. TENORMIN [Suspect]
     Route: 048
  2. TAMOXIFEN CITRATE [Suspect]
     Route: 048
     Dates: start: 20080209, end: 20080303
  3. TRIATEC [Suspect]
     Route: 048
  4. AMLOR [Suspect]
     Route: 048
  5. OFLOCET [Suspect]
     Route: 048
     Dates: start: 20080125, end: 20080127
  6. VANCOMYCIN [Suspect]
     Route: 065
     Dates: start: 20080127, end: 20080219
  7. TIENAM [Suspect]
     Route: 065
     Dates: start: 20080130, end: 20080219
  8. SPECIAFOLDINE [Concomitant]
  9. NEORECORMON [Concomitant]
     Route: 058
     Dates: start: 20030901, end: 20080101
  10. RENAGEL [Concomitant]
  11. KAYEXALATE [Concomitant]
  12. CALCIDIA [Concomitant]

REACTIONS (1)
  - APLASTIC ANAEMIA [None]
